FAERS Safety Report 8901730 (Version 1)
Quarter: 2012Q4

REPORT INFORMATION
  Report Type: Spontaneous
  Country: NL (occurrence: None)
  Receive Date: 20121101
  Receipt Date: 20121101
  Transmission Date: 20130627
  Serious: Yes (Hospitalization)
  Sender: FDA-Public Use
  Company Number: 2012000232

PATIENT
  Age: 62 Year
  Sex: Male

DRUGS (6)
  1. ACEON (PERINDOPRIL ERBUMINE) TABLET [Suspect]
     Indication: HYPERTENSION ARTERIAL
     Route: 048
  2. FUROSEMIDE (FUROSEMIDE) [Suspect]
     Indication: PERIPHERAL EDEMA
  3. LICORICE [Suspect]
     Indication: PRODUCT USED FOR UNKNOWN INDICATION
  4. SALMETEROL (SALMETEROL) [Concomitant]
  5. FLUTICASONE (FLUTICASONE) [Concomitant]
  6. TIOTROPIUM (TIOTROPIUM) [Concomitant]

REACTIONS (8)
  - Metabolic alkalosis [None]
  - Hypokalaemia [None]
  - Ventricular tachycardia [None]
  - Emphysema [None]
  - Chronic obstructive pulmonary disease [None]
  - Muscular weakness [None]
  - Respiratory depression [None]
  - Renal failure [None]
